FAERS Safety Report 23421771 (Version 1)
Quarter: 2024Q1

REPORT INFORMATION
  Report Type: Spontaneous
  Country: FR (occurrence: FR)
  Receive Date: 20240119
  Receipt Date: 20240119
  Transmission Date: 20240410
  Serious: Yes (Other)
  Sender: FDA-Public Use
  Company Number: FR-BIOCON-BBL2023001934

PATIENT

DRUGS (5)
  1. FLUOROURACIL [Suspect]
     Active Substance: FLUOROURACIL
     Indication: Bile duct cancer
     Dosage: 40 MILLIGRAM/KILOGRAM, BIWEEKLY
     Route: 042
  2. FLUOROURACIL [Suspect]
     Active Substance: FLUOROURACIL
     Dosage: 2400 MILLIGRAM/KILOGRAM (OVER 46 HOURS)
     Route: 042
  3. IRINOTECAN [Suspect]
     Active Substance: IRINOTECAN
     Indication: Bile duct cancer
     Dosage: 180 MILLIGRAM/SQ. METER, BIWEEKLY (OVER 90 MIN)
     Route: 042
  4. LEUCOVORIN [Suspect]
     Active Substance: LEUCOVORIN\LEUCOVORIN CALCIUM
     Indication: Bile duct cancer
     Dosage: 200 MILLIGRAM/SQ. METER, BIWEEKLY (OVER 120 MIN)
     Route: 042
  5. BEVACIZUMAB [Suspect]
     Active Substance: BEVACIZUMAB
     Indication: Bile duct cancer
     Dosage: 5 MILLIGRAM/KILOGRAM, BIWEEKLY (OVER 90 MIN)
     Route: 042

REACTIONS (1)
  - Gastrointestinal haemorrhage [Unknown]
